FAERS Safety Report 8492235-6 (Version None)
Quarter: 2012Q3

REPORT INFORMATION
  Report Type: 
  Country: None (occurrence: None)
  Receive Date: 20120706
  Receipt Date: 20120627
  Transmission Date: 20120928
  Serious: Yes (Hospitalization)
  Sender: FDA-Public Use
  Company Number: AU-B.I. PHARMACEUTICALS,INC./RIDGEFIELD-2012-AU-01064AU

PATIENT
  Sex: Male

DRUGS (1)
  1. PRADAXA [Suspect]
     Dosage: 220 MG
     Dates: start: 20111101

REACTIONS (3)
  - FLUID OVERLOAD [None]
  - ILL-DEFINED DISORDER [None]
  - CARDIAC FAILURE [None]
